FAERS Safety Report 9402366 (Version 1)
Quarter: 2013Q3

REPORT INFORMATION
  Report Type: Spontaneous
  Country: NO (occurrence: NO)
  Receive Date: 20130716
  Receipt Date: 20130716
  Transmission Date: 20140515
  Serious: Yes (Hospitalization)
  Sender: FDA-Public Use
  Company Number: NO-JNJFOC-20130706273

PATIENT
  Age: 89 Year
  Sex: Male

DRUGS (9)
  1. XARELTO [Suspect]
     Indication: CEREBROVASCULAR ACCIDENT PROPHYLAXIS
     Route: 048
     Dates: start: 20130428, end: 20130615
  2. XARELTO [Suspect]
     Indication: ATRIAL FIBRILLATION
     Route: 048
     Dates: start: 20130428, end: 20130615
  3. HYDROCHLOROTHIAZIDE W/LOSARTAN [Concomitant]
     Indication: HYPERTENSION
     Route: 048
  4. TOLVON [Concomitant]
     Indication: INSOMNIA
     Route: 048
  5. FINASTERIDE [Concomitant]
     Indication: PROSTATISM
     Route: 048
  6. GLUCOPHAGE [Concomitant]
     Indication: TYPE 2 DIABETES MELLITUS
     Route: 048
  7. BLOCADREN [Concomitant]
     Indication: GLAUCOMA
     Route: 047
  8. SIMVASTATIN [Concomitant]
     Indication: HYPERCHOLESTEROLAEMIA
     Route: 048
  9. SELO-ZOK [Concomitant]
     Indication: HYPERTENSION
     Route: 048

REACTIONS (3)
  - Thrombosis [Recovered/Resolved with Sequelae]
  - Sudden visual loss [Recovered/Resolved with Sequelae]
  - Drug effect incomplete [Recovered/Resolved with Sequelae]
